FAERS Safety Report 14895900 (Version 1)
Quarter: 2018Q2

REPORT INFORMATION
  Report Type: Spontaneous
  Country: CN (occurrence: CN)
  Receive Date: 20180515
  Receipt Date: 20180515
  Transmission Date: 20180711
  Serious: Yes (Other)
  Sender: FDA-Public Use
  Company Number: CN-BRACCO DIAGNOSTICS, INC.-2018CN02519

PATIENT
  Sex: Female

DRUGS (2)
  1. SONOVUE [Suspect]
     Active Substance: SULFUR HEXAFLUORIDE
     Indication: ULTRASOUND SCAN
     Dosage: 2 ML, SINGLE
     Route: 042
     Dates: start: 20180504, end: 20180504
  2. SALINE                             /00075401/ [Concomitant]
     Active Substance: SODIUM CHLORIDE
     Dosage: UNK

REACTIONS (4)
  - Amaurosis fugax [Recovered/Resolved]
  - Cyanosis [Recovered/Resolved]
  - Heart rate decreased [Recovered/Resolved]
  - Cough [Recovered/Resolved]

NARRATIVE: CASE EVENT DATE: 20180504
